FAERS Safety Report 10370519 (Version 4)
Quarter: 2014Q3

REPORT INFORMATION
  Report Type: Spontaneous
  Country: US (occurrence: None)
  Receive Date: 20140729
  Receipt Date: 20140911
  Transmission Date: 20150326
  Serious: Yes (Life-Threatening, Hospitalization, Other)
  Sender: FDA-Public Use
  Company Number: 003-206

PATIENT
  Age: 68 Year
  Sex: Female

DRUGS (6)
  1. PREMARIN [Concomitant]
     Active Substance: ESTROGENS, CONJUGATED
  2. ZYRTEC [Concomitant]
     Active Substance: CETIRIZINE HYDROCHLORIDE
  3. HYDROCHLOROTHIAZIDE. [Concomitant]
     Active Substance: HYDROCHLOROTHIAZIDE
  4. SINGULAIR [Concomitant]
     Active Substance: MONTELUKAST SODIUM
  5. LISINOPRIL. [Concomitant]
     Active Substance: LISINOPRIL
  6. CROFAB [Suspect]
     Active Substance: CROTALIDAE POLYVALENT IMMUNE FAB (OVINE)
     Indication: SNAKE BITE
     Dates: start: 20140713

REACTIONS (19)
  - Erythema [None]
  - Diarrhoea [None]
  - Fatigue [None]
  - Dyspnoea [None]
  - Contusion [None]
  - Anxiety [None]
  - Anaphylactic reaction [None]
  - Musculoskeletal stiffness [None]
  - Hypotension [None]
  - Urticaria [None]
  - Pruritus [None]
  - Flushing [None]
  - Rash [None]
  - Nausea [None]
  - Vomiting [None]
  - Hypersensitivity [None]
  - Pain [None]
  - Somnolence [None]
  - Swelling [None]

NARRATIVE: CASE EVENT DATE: 20140713
